FAERS Safety Report 24602917 (Version 1)
Quarter: 2024Q4

REPORT INFORMATION
  Report Type: Spontaneous
  Country: US (occurrence: None)
  Receive Date: 20241110
  Receipt Date: 20241110
  Transmission Date: 20250115
  Serious: Yes (Hospitalization)
  Sender: Public
  Company Number: None

PATIENT
  Sex: Male

DRUGS (11)
  1. TACROLIMUS [Suspect]
     Active Substance: TACROLIMUS
     Indication: Liver transplant
     Dosage: FREQ: TAKE 1 CAPSULE (0.5 MG TOTAL) BY MOUTH IN THE MORNING?
     Route: 048
     Dates: start: 20200807
  2. ASPIRIN [Concomitant]
     Active Substance: ASPIRIN
  3. ATORVASTATIN [Concomitant]
  4. CALCIUM/D [Concomitant]
  5. DILTIAZEM [Concomitant]
     Active Substance: DILTIAZEM
  6. GEMCITABINE [Concomitant]
     Active Substance: GEMCITABINE
  7. KEPPRA [Concomitant]
     Active Substance: LEVETIRACETAM
  8. MAGNESIUM [Concomitant]
     Active Substance: MAGNESIUM
  9. METOPROL TAR [Concomitant]
  10. ONDANSETRON [Concomitant]
     Active Substance: ONDANSETRON
  11. OZEMPIC [Concomitant]
     Active Substance: SEMAGLUTIDE

REACTIONS (2)
  - Mental status changes [None]
  - Disorientation [None]
